FAERS Safety Report 9519067 (Version 1)
Quarter: 2013Q1

REPORT INFORMATION
  Report Type: Spontaneous
  Country: US (occurrence: None)
  Receive Date: 20130305
  Receipt Date: 20130305
  Transmission Date: 20140127
  Serious: Yes (Death)
  Sender: FDA-Public Use
  Company Number: 163-21880-12010331

PATIENT
  Age: 64 Year
  Sex: Male
  Weight: 88.91 kg

DRUGS (9)
  1. REVLIMID (LENALIDOMIDE) (CAPSULES) [Suspect]
     Indication: PLASMA CELL MYELOMA
     Dosage: 15 MG, DAYS 1-21, PO
     Route: 048
     Dates: start: 20111223, end: 20120103
  2. VELCADE (BORTEZOMIB) [Concomitant]
  3. DEXAMETHASONE [Concomitant]
  4. ASA 9ACETYLSALICYLIC ACID) [Concomitant]
  5. COLACE (DOCUSATE SODIUM) [Concomitant]
  6. FISH OIL [Concomitant]
  7. GLUCOSAMINE [Concomitant]
  8. HYDROCODONE [Concomitant]
  9. MORPHINE [Concomitant]

REACTIONS (1)
  - Pulmonary embolism [None]
